FAERS Safety Report 9813954 (Version 1)
Quarter: 2014Q1

REPORT INFORMATION
  Report Type: Report from Study
  Country: None (occurrence: US)
  Receive Date: 20140113
  Receipt Date: 20140113
  Transmission Date: 20141002
  Serious: Yes (Hospitalization, Other)
  Sender: FDA-Public Use
  Company Number: US-EXELIXIS-XL18413003864

PATIENT
  Age: 84 Year
  Sex: Male

DRUGS (3)
  1. XL184 [Suspect]
     Indication: PROSTATE CANCER
     Dosage: 60 MG, QD
     Route: 048
     Dates: start: 20130723
  2. DOCETAXEL [Concomitant]
     Dosage: 75 MG/M2, Q3WEEKS
     Route: 042
     Dates: start: 20130723
  3. PREDNISONE [Concomitant]
     Dosage: 5 MG, BID
     Route: 048
     Dates: start: 20130723

REACTIONS (5)
  - Mucosal infection [Recovered/Resolved]
  - Stomatitis [Recovered/Resolved]
  - Neutrophil count decreased [Recovered/Resolved]
  - Febrile neutropenia [Recovered/Resolved]
  - Dehydration [Recovered/Resolved]
